FAERS Safety Report 10022355 (Version 1)
Quarter: 2014Q1

REPORT INFORMATION
  Report Type: Spontaneous
  Country: GB (occurrence: GB)
  Receive Date: 20140319
  Receipt Date: 20140319
  Transmission Date: 20141002
  Serious: Yes (Other)
  Sender: FDA-Public Use
  Company Number: GB-WATSON-2014-04890

PATIENT
  Age: 49 Year
  Sex: Male
  Weight: 106 kg

DRUGS (1)
  1. CLARITHROMYCIN (UNKNOWN) [Suspect]
     Indication: COUGH
     Dosage: 500 MG, BID
     Route: 048
     Dates: start: 20130802, end: 20130809

REACTIONS (1)
  - Tubulointerstitial nephritis [Not Recovered/Not Resolved]
